FAERS Safety Report 5511200-1 (Version None)
Quarter: 2007Q4

REPORT INFORMATION
  Report Type: 
  Country: None (occurrence: None)
  Receive Date: 20071109
  Receipt Date: 20071030
  Transmission Date: 20080405
  Serious: Yes (Death, Life-Threatening)
  Sender: FDA-Public Use
  Company Number: FR-ELI_LILLY_AND_COMPANY-FR200710007146

PATIENT
  Sex: Female

DRUGS (13)
  1. ALIMTA [Suspect]
     Indication: LUNG CANCER METASTATIC
     Dosage: UNK, UNKNOWN
     Route: 042
     Dates: start: 20070627, end: 20070719
  2. LOVENOX [Concomitant]
     Dosage: 0.4 ML, DAILY (1/D)
     Route: 058
     Dates: start: 20070703, end: 20070725
  3. FRAXIPARINE [Concomitant]
     Route: 058
     Dates: start: 20070608, end: 20070625
  4. INEXIUM [Concomitant]
     Route: 065
     Dates: start: 20070703
  5. JAMYLENE [Concomitant]
     Route: 065
     Dates: start: 20070628
  6. CORDARONE [Concomitant]
     Route: 065
     Dates: start: 20070625
  7. LANSOYL [Concomitant]
     Route: 065
  8. SOLU-PRED [Concomitant]
     Route: 065
  9. DUPHALAC [Concomitant]
     Route: 065
     Dates: start: 20070618
  10. TRIFLUCAN [Concomitant]
     Route: 065
     Dates: start: 20070613
  11. ENDOTELON                          /00811401/ [Concomitant]
     Route: 065
  12. ANAFRANIL [Concomitant]
     Route: 065
  13. LEXOMIL [Concomitant]
     Route: 065

REACTIONS (3)
  - FEBRILE NEUTROPENIA [None]
  - THROMBOCYTOPENIA [None]
  - WHITE BLOOD CELL COUNT DECREASED [None]
